FAERS Safety Report 4989751-8 (Version None)
Quarter: 2006Q2

REPORT INFORMATION
  Report Type: 
  Country: None (occurrence: None)
  Receive Date: 20060501
  Receipt Date: 20060424
  Transmission Date: 20061013
  Serious: Yes (Hospitalization)
  Sender: FDA-Public Use
  Company Number: PERC20060022

PATIENT
  Age: 80 Year
  Sex: Male
  Weight: 72.5755 kg

DRUGS (9)
  1. PERCOCET [Suspect]
     Indication: ARTHRALGIA
     Dosage: 1 TAB QID PO
     Route: 048
     Dates: start: 20030101, end: 20060410
  2. PERCOCET [Suspect]
     Indication: BONE PAIN
     Dosage: 1 TAB QID PO
     Route: 048
     Dates: start: 20030101, end: 20060410
  3. ALEVE (CAPLET) [Suspect]
     Indication: PAIN
     Dosage: PO
     Route: 048
  4. PROCARDIA XL [Concomitant]
  5. XANAX [Concomitant]
  6. LASIX [Concomitant]
  7. RESTORIL [Concomitant]
  8. PAMELOR [Concomitant]
  9. NEURONTIN [Concomitant]

REACTIONS (6)
  - CONSTIPATION [None]
  - DRUG INEFFECTIVE [None]
  - EATING DISORDER [None]
  - PRURITUS [None]
  - RASH [None]
  - ULCER HAEMORRHAGE [None]
